FAERS Safety Report 4707066-X (Version None)
Quarter: 2005Q2

REPORT INFORMATION
  Report Type: 
  Country: None (occurrence: None)
  Receive Date: 20050113
  Receipt Date: 20050113
  Transmission Date: 20051028
  Serious: Yes (Other)
  Sender: FDA-Public Use
  Company Number: None

PATIENT
  Sex: Female

DRUGS (2)
  1. ISOPTIN SR [Suspect]
     Indication: CORONARY ARTERY DISEASE
     Dosage: 1/2 TAB PO DAILY
     Route: 048
  2. ISOPTIN SR [Suspect]
     Indication: HYPERTENSION
     Dosage: 1/2 TAB PO DAILY
     Route: 048

REACTIONS (1)
  - AUTOIMMUNE DISORDER [None]
